FAERS Safety Report 24685012 (Version 1)
Quarter: 2024Q4

REPORT INFORMATION
  Report Type: Spontaneous
  Country: FR (occurrence: FR)
  Receive Date: 20241202
  Receipt Date: 20241202
  Transmission Date: 20250114
  Serious: Yes (Death)
  Sender: HIKMA
  Company Number: FR-HIKMA PHARMACEUTICALS USA INC.-FR-H14001-24-11118

PATIENT
  Age: 92 Year
  Sex: Female

DRUGS (3)
  1. CEFTAZIDIME [Suspect]
     Active Substance: CEFTAZIDIME
     Indication: Infection
     Dosage: UNKNOWN
     Route: 065
     Dates: start: 20240205, end: 20240211
  2. DAPTOMYCIN [Suspect]
     Active Substance: DAPTOMYCIN
     Indication: Infection
     Dosage: UNKNOWN
     Route: 065
     Dates: start: 20240103, end: 20240108
  3. DAPTOMYCIN [Suspect]
     Active Substance: DAPTOMYCIN
     Dosage: UNKNOWN
     Route: 065
     Dates: start: 20240205, end: 20240211

REACTIONS (1)
  - Hepatic cytolysis [Fatal]

NARRATIVE: CASE EVENT DATE: 20240208
